FAERS Safety Report 4825588-8 (Version None)
Quarter: 2005Q4

REPORT INFORMATION
  Report Type: 
  Country: None (occurrence: None)
  Receive Date: 20051111
  Receipt Date: 20050927
  Transmission Date: 20060501
  Serious: No
  Sender: FDA-Public Use
  Company Number: US-GLAXOSMITHKLINE-A0576095A

PATIENT
  Age: 76 Year
  Sex: Male

DRUGS (3)
  1. AVODART [Suspect]
     Route: 048
     Dates: start: 20050720, end: 20050809
  2. GLIPIZIDE [Concomitant]
  3. LISINOPRIL [Concomitant]

REACTIONS (1)
  - BACK PAIN [None]
